FAERS Safety Report 19433827 (Version 1)
Quarter: 2021Q2

REPORT INFORMATION
  Report Type: Spontaneous
  Country: US (occurrence: US)
  Receive Date: 20210617
  Receipt Date: 20210617
  Transmission Date: 20210717
  Serious: Yes (Hospitalization, Other)
  Sender: FDA-Public Use
  Company Number: US-ROCHE-2588366

PATIENT
  Age: 43 Year
  Sex: Male
  Weight: 113.5 kg

DRUGS (3)
  1. ACTEMRA [Suspect]
     Active Substance: TOCILIZUMAB
     Indication: COVID-19
     Dosage: NO
     Route: 042
  2. HYDROXYCHLOROQUINE [Concomitant]
     Active Substance: HYDROXYCHLOROQUINE
     Indication: COVID-19
     Dates: start: 20200411, end: 20200411
  3. HYDROXYCHLOROQUINE [Concomitant]
     Active Substance: HYDROXYCHLOROQUINE
     Dosage: NO
     Dates: start: 20200412, end: 20200415

REACTIONS (4)
  - Off label use [Unknown]
  - Angioedema [Recovering/Resolving]
  - Chills [Recovered/Resolved]
  - Intentional product use issue [Unknown]
